FAERS Safety Report 18202504 (Version 1)
Quarter: 2020Q3

REPORT INFORMATION
  Report Type: Spontaneous
  Country: SE (occurrence: SE)
  Receive Date: 20200827
  Receipt Date: 20200827
  Transmission Date: 20201103
  Serious: Yes (Hospitalization)
  Sender: FDA-Public Use
  Company Number: SE-ACCORD-193473

PATIENT
  Age: 71 Year
  Sex: Female

DRUGS (15)
  1. PULMICORT TURBUHALER [Concomitant]
     Active Substance: BUDESONIDE
     Dosage: 400 MICROGRAM / DOSE
  2. FURIX [Concomitant]
     Dosage: 1X2,20 MG TABLET
  3. OMEPRAZOL TEVA [Concomitant]
     Active Substance: OMEPRAZOLE
  4. VENTOLINE EVOHALER [Concomitant]
     Active Substance: ALBUTEROL SULFATE
     Dosage: 1?2 IF NEEDED,0.1 MG / DOSE
  5. TRAJENTA [Concomitant]
     Active Substance: LINAGLIPTIN
     Dosage: 5 MG
  6. LORATADIN RATIOPHARM [Concomitant]
     Dosage: 10 MG TABLET
  7. ULTIBRO BREEZHALER [Concomitant]
     Active Substance: GLYCOPYRRONIUM\INDACATEROL
     Dosage: 85 MICROGRAM / 43 MICROGRAM
  8. ATORVASTATIN MYLAN [Concomitant]
     Active Substance: ATORVASTATIN
     Dosage: 40 MG
  9. HERCEPTIN [Suspect]
     Active Substance: TRASTUZUMAB
     Indication: BREAST CANCER
     Route: 042
  10. DIMOR [Concomitant]
     Active Substance: LOPERAMIDE
     Dosage: 1?2 TABLETS IF NEEDED, 2 MG
  11. KALEORID [Concomitant]
     Active Substance: POTASSIUM CHLORIDE
     Dosage: 750 MG
  12. KININ RPH PHARMA [Concomitant]
     Dosage: 1?2 TABLETS X 1,250 MG
  13. NORMORIX MITE [Concomitant]
     Active Substance: AMILORIDE HYDROCHLORIDE\HYDROCHLOROTHIAZIDE
     Dosage: 5 MG/50 MG TABLET
  14. DOCETAXEL. [Suspect]
     Active Substance: DOCETAXEL
     Indication: BREAST CANCER
     Route: 042
     Dates: start: 20200423, end: 20200615
  15. TRASTUZUMAB. [Suspect]
     Active Substance: TRASTUZUMAB
     Indication: BREAST CANCER
     Route: 042

REACTIONS (3)
  - Diarrhoea [Recovered/Resolved]
  - Colitis [Recovered/Resolved]
  - Gastrointestinal toxicity [Recovered/Resolved]

NARRATIVE: CASE EVENT DATE: 20200522
